FAERS Safety Report 19878732 (Version 1)
Quarter: 2021Q3

REPORT INFORMATION
  Report Type: Spontaneous
  Country: RO (occurrence: RO)
  Receive Date: 20210924
  Receipt Date: 20210924
  Transmission Date: 20211014
  Serious: Yes (Hospitalization, Other)
  Sender: FDA-Public Use
  Company Number: RO-AUROBINDO-AUR-APL-2021-040339

PATIENT
  Age: 30 Year
  Sex: Male

DRUGS (4)
  1. SODIUM VALPROATE [Suspect]
     Active Substance: VALPROATE SODIUM
     Indication: PSYCHOTIC DISORDER
     Dosage: 1000 MILLIGRAM, ONCE A DAY
     Route: 065
     Dates: start: 2020
  2. RISPERIDONE. [Suspect]
     Active Substance: RISPERIDONE
     Indication: PSYCHOTIC DISORDER
     Dosage: 6 MILLIGRAM
     Route: 048
     Dates: start: 2020
  3. ZOPICLONE [Suspect]
     Active Substance: ZOPICLONE
     Indication: PSYCHOTIC DISORDER
     Dosage: 7.5 MILLIGRAM, ONCE A DAY
     Route: 065
     Dates: start: 2020
  4. TRIHEXYPHENIDYL HYDROCHLORIDE. [Suspect]
     Active Substance: TRIHEXYPHENIDYL HYDROCHLORIDE
     Indication: PSYCHOTIC DISORDER
     Dosage: 4 MILLIGRAM, ONCE A DAY
     Route: 065
     Dates: start: 2020

REACTIONS (7)
  - Irritability [Unknown]
  - Insomnia [Unknown]
  - Psychotic symptom [Unknown]
  - Condition aggravated [Unknown]
  - Abnormal behaviour [Unknown]
  - Behaviour disorder [Unknown]
  - Anger [Unknown]

NARRATIVE: CASE EVENT DATE: 2020
